FAERS Safety Report 20329553 (Version 3)
Quarter: 2022Q1

REPORT INFORMATION
  Report Type: Report from Study
  Country: BR (occurrence: BR)
  Receive Date: 20220112
  Receipt Date: 20220215
  Transmission Date: 20220423
  Serious: Yes (Death, Hospitalization)
  Sender: FDA-Public Use
  Company Number: BR-ABBVIE-21K-020-4208638-00

PATIENT
  Sex: Female

DRUGS (1)
  1. RINVOQ [Suspect]
     Active Substance: UPADACITINIB
     Indication: Rheumatoid arthritis
     Route: 048
     Dates: start: 20210902

REACTIONS (7)
  - Coagulopathy [Fatal]
  - Cerebral disorder [Fatal]
  - Pneumonia [Not Recovered/Not Resolved]
  - Animal bite [Unknown]
  - Malaise [Unknown]
  - Mental disorder [Unknown]
  - Nervousness [Unknown]

NARRATIVE: CASE EVENT DATE: 20210101
